FAERS Safety Report 6247605-3 (Version None)
Quarter: 2009Q2

REPORT INFORMATION
  Report Type: 
  Country: None (occurrence: None)
  Receive Date: 20090626
  Receipt Date: 20090615
  Transmission Date: 20091009
  Serious: Yes (Other)
  Sender: FDA-Public Use
  Company Number: US-WYE-H09750309

PATIENT
  Sex: Female
  Weight: 68.1 kg

DRUGS (12)
  1. PRISTIQ [Suspect]
     Indication: POST-TRAUMATIC STRESS DISORDER
     Route: 048
     Dates: start: 20090101, end: 20090101
  2. PRISTIQ [Suspect]
     Indication: DEPRESSION
     Route: 048
     Dates: start: 20090101, end: 20090501
  3. SYNTHROID [Concomitant]
     Dosage: UNKNOWN
  4. TYLENOL (CAPLET) [Concomitant]
     Indication: BACK PAIN
     Dosage: AS NEEDED
  5. TYLENOL (CAPLET) [Concomitant]
     Indication: HEADACHE
  6. VITAMINS [Concomitant]
     Dosage: UNKNOWN
  7. AMBIEN CR [Concomitant]
     Dosage: UNKNOWN
  8. IBUPROFEN [Concomitant]
     Indication: BACK PAIN
     Dosage: AS NEEDED
  9. IBUPROFEN [Concomitant]
     Indication: HEADACHE
  10. WELLBUTRIN XL [Concomitant]
     Indication: POST-TRAUMATIC STRESS DISORDER
     Dosage: 300 MG, FREQUENCY UNKNOWN
     Dates: start: 20090201, end: 20090501
  11. WELLBUTRIN XL [Concomitant]
     Indication: DEPRESSION
  12. KLONOPIN [Concomitant]
     Dosage: UNKNOWN
     Dates: end: 20090101

REACTIONS (14)
  - ABDOMINAL DISTENSION [None]
  - ARTHRALGIA [None]
  - ASCITES [None]
  - CONSTIPATION [None]
  - DYSPNOEA [None]
  - GLAUCOMA [None]
  - INTENTIONAL DRUG MISUSE [None]
  - IRRITABILITY [None]
  - JOINT SWELLING [None]
  - LIVER DISORDER [None]
  - NERVOUSNESS [None]
  - SWELLING FACE [None]
  - WEIGHT INCREASED [None]
  - WHEEZING [None]
